FAERS Safety Report 4692325-X (Version None)
Quarter: 2005Q2

REPORT INFORMATION
  Report Type: 
  Country: None (occurrence: None)
  Receive Date: 20050614
  Receipt Date: 20050321
  Transmission Date: 20051028
  Serious: Yes (Hospitalization)
  Sender: FDA-Public Use
  Company Number: 26317

PATIENT
  Age: 78 Year
  Sex: Female

DRUGS (6)
  1. FLECAINIDE ACETATE [Suspect]
     Indication: ATRIAL FLUTTER
     Dosage: (50 MG) ORAL
     Route: 048
     Dates: start: 20040101, end: 20050107
  2. BRICANYL [Concomitant]
  3. SYMBICORT [Concomitant]
  4. LANSOPRAZOLE [Concomitant]
  5. CO-AMILOFRUSE [Concomitant]
  6. NICORANDIL [Concomitant]

REACTIONS (1)
  - HEPATITIS [None]
